FAERS Safety Report 13664718 (Version 3)
Quarter: 2017Q3

REPORT INFORMATION
  Report Type: Spontaneous
  Country: US (occurrence: US)
  Receive Date: 20170619
  Receipt Date: 20170918
  Transmission Date: 20171127
  Serious: Yes (Disabling, Other)
  Sender: FDA-Public Use
  Company Number: US-009507513-1706USA007143

PATIENT
  Age: 79 Year
  Sex: Male

DRUGS (2)
  1. KEYTRUDA [Suspect]
     Active Substance: PEMBROLIZUMAB
     Dosage: 2 MG/KG, Q3W; INFUSION (AFTER THE TREATMENT WAS WITHHELD FOR 6 WEEKS)
  2. KEYTRUDA [Suspect]
     Active Substance: PEMBROLIZUMAB
     Indication: MALIGNANT MELANOMA STAGE IV
     Dosage: 2 MG/KG, Q3W; INFUSION

REACTIONS (4)
  - Pneumonitis [Recovering/Resolving]
  - Autoimmune nephritis [Unknown]
  - Autoimmune disorder [Unknown]
  - Scleroderma [Recovered/Resolved]
